FAERS Safety Report 11563552 (Version 1)
Quarter: 2015Q3

REPORT INFORMATION
  Report Type: Spontaneous
  Country: US (occurrence: US)
  Receive Date: 20150928
  Receipt Date: 20150928
  Transmission Date: 20151125
  Serious: No
  Sender: FDA-Public Use
  Company Number: US-WATSON-2014-28492

PATIENT
  Age: 56 Year
  Sex: Female

DRUGS (2)
  1. ZENPEP [Suspect]
     Active Substance: PANCRELIPASE\PANCRELIPASE AMYLASE\PANCRELIPASE LIPASE\PANCRELIPASE PROTEASE
     Indication: PANCREATITIS CHRONIC
     Dosage: 25000 USP (50,000 USP WITH MEALS, 25,000 USP
     Route: 065
     Dates: start: 2013
  2. ACTIFED [Concomitant]
     Active Substance: PSEUDOEPHEDRINE HYDROCHLORIDE\TRIPROLIDINE HYDROCHLORIDE
     Indication: RESPIRATORY TRACT CONGESTION
     Dosage: ONCE IN AWHILE
     Route: 065

REACTIONS (1)
  - Eczema [Not Recovered/Not Resolved]
